FAERS Safety Report 24110894 (Version 2)
Quarter: 2024Q3

REPORT INFORMATION
  Report Type: Spontaneous
  Country: US (occurrence: US)
  Receive Date: 20240718
  Receipt Date: 20240826
  Transmission Date: 20241016
  Serious: No
  Sender: SANOFI AVENTIS
  Company Number: US-SA-SAC20240715001127

PATIENT
  Age: 10 Year
  Sex: Female
  Weight: 51.7 kg

DRUGS (5)
  1. DUPIXENT [Suspect]
     Active Substance: DUPILUMAB
     Indication: Dermatitis
     Dosage: 200 MG, QOW
     Route: 058
     Dates: start: 20240404
  2. BETAMETHASONE DIPROPIONATE AUGMENTED [Concomitant]
     Active Substance: BETAMETHASONE DIPROPIONATE
  3. VTAMA [Concomitant]
     Active Substance: TAPINAROF
  4. MONTELUKAST SODIUM [Concomitant]
     Active Substance: MONTELUKAST\MONTELUKAST SODIUM
  5. TRETINOIN [Concomitant]
     Active Substance: TRETINOIN

REACTIONS (4)
  - Dermatitis [Recovering/Resolving]
  - Dry skin [Recovering/Resolving]
  - Product use in unapproved indication [Unknown]
  - Therapeutic product effective for unapproved indication [Unknown]

NARRATIVE: CASE EVENT DATE: 20240101
